FAERS Safety Report 24007863 (Version 6)
Quarter: 2025Q1

REPORT INFORMATION
  Report Type: Report from Study
  Country: US (occurrence: US)
  Receive Date: 20240625
  Receipt Date: 20250307
  Transmission Date: 20250409
  Serious: Yes (Other)
  Sender: ACADIA PHARMACEUTICALS
  Company Number: US-ACADIA PHARMACEUTICALS INC.-ACA-2024-PIM-002681

PATIENT
  Age: 74 Year
  Sex: Male

DRUGS (28)
  1. NUPLAZID [Suspect]
     Active Substance: PIMAVANSERIN TARTRATE
     Indication: Parkinson^s disease psychosis
     Dosage: 34 MILLIGRAM, QD
     Route: 048
     Dates: start: 20240522
  2. MAGNESIUM [Concomitant]
     Active Substance: MAGNESIUM
  3. VITAMIN K [Concomitant]
     Active Substance: PHYTONADIONE
  4. FISH OIL [Concomitant]
     Active Substance: FISH OIL
  5. ALPRAZOLAM [Concomitant]
     Active Substance: ALPRAZOLAM
  6. LISINOPRIL [Concomitant]
     Active Substance: LISINOPRIL
  7. CARVEDILOL [Concomitant]
     Active Substance: CARVEDILOL
  8. LEVOTHYROXINE [Concomitant]
     Active Substance: LEVOTHYROXINE
  9. FINASTERIDE [Concomitant]
     Active Substance: FINASTERIDE
  10. MYRBETRIQ [Concomitant]
     Active Substance: MIRABEGRON
  11. TAMSULOSIN [Concomitant]
     Active Substance: TAMSULOSIN
  12. VENLAFAXINE [Concomitant]
     Active Substance: VENLAFAXINE HYDROCHLORIDE
  13. FLUDROCORTISONE [Concomitant]
     Active Substance: FLUDROCORTISONE
  14. FUROSEMIDE [Concomitant]
     Active Substance: FUROSEMIDE
  15. ATORVASTATIN [Concomitant]
     Active Substance: ATORVASTATIN
  16. KLOR-CON [Concomitant]
     Active Substance: POTASSIUM CHLORIDE
  17. QUETIAPINE [Concomitant]
     Active Substance: QUETIAPINE
  18. GABAPENTIN [Concomitant]
     Active Substance: GABAPENTIN
  19. VITAMINS NOS [Concomitant]
     Active Substance: VITAMINS
  20. METHOCARBAMOL AL [Concomitant]
  21. CARBIDOPA\LEVODOPA [Concomitant]
     Active Substance: CARBIDOPA\LEVODOPA
  22. MIRALAX [Concomitant]
     Active Substance: POLYETHYLENE GLYCOL 3350
  23. LIDOCAINE [Concomitant]
     Active Substance: LIDOCAINE
  24. MUPIROCIN [Concomitant]
     Active Substance: MUPIROCIN
  25. ACETAMINOPHEN\CODEINE PHOSPHATE [Concomitant]
     Active Substance: ACETAMINOPHEN\CODEINE PHOSPHATE
  26. ELIQUIS [Concomitant]
     Active Substance: APIXABAN
  27. AMOXICILLIN\CLAVULANATE POTASSIUM [Concomitant]
     Active Substance: AMOXICILLIN\CLAVULANATE POTASSIUM
  28. GEMTESA [Concomitant]
     Active Substance: VIBEGRON

REACTIONS (10)
  - Depressed level of consciousness [Unknown]
  - Hallucination [Not Recovered/Not Resolved]
  - Hallucination, auditory [Unknown]
  - Hallucination, visual [Not Recovered/Not Resolved]
  - Urinary tract infection [Not Recovered/Not Resolved]
  - Rib fracture [Unknown]
  - Road traffic accident [Unknown]
  - Ankle fracture [Unknown]
  - Delusion [Unknown]
  - Gastrointestinal disorder [Not Recovered/Not Resolved]

NARRATIVE: CASE EVENT DATE: 20240615
